FAERS Safety Report 6071789-3 (Version None)
Quarter: 2009Q1

REPORT INFORMATION
  Report Type: 
  Country: None (occurrence: None)
  Receive Date: 20090210
  Receipt Date: 20090130
  Transmission Date: 20090719
  Serious: Yes (Hospitalization, Other)
  Sender: FDA-Public Use
  Company Number: PHNU2008DE01794

PATIENT
  Sex: Male
  Weight: 30 kg

DRUGS (3)
  1. RITALIN LA [Suspect]
     Indication: ATTENTION DEFICIT/HYPERACTIVITY DISORDER
     Dosage: 20 MG/DAY
     Route: 048
     Dates: start: 20080104
  2. MEDIKINET [Suspect]
     Indication: ATTENTION DEFICIT/HYPERACTIVITY DISORDER
     Dosage: 12.5 MG DAILY
     Route: 048
     Dates: start: 20060101, end: 20080103
  3. MEDIKINET [Suspect]
     Dosage: 10 MG IN THE MORNING, 2.5 MG IN THE AFTERNOON
     Dates: start: 20080218

REACTIONS (9)
  - ANTI-ISLET CELL ANTIBODY POSITIVE [None]
  - BLOOD GLUCOSE INCREASED [None]
  - BLOOD THYROID STIMULATING HORMONE INCREASED [None]
  - DEHYDRATION [None]
  - ENURESIS [None]
  - GLUCOSE URINE [None]
  - GLYCOSYLATED HAEMOGLOBIN INCREASED [None]
  - THYROID CYST [None]
  - TYPE 1 DIABETES MELLITUS [None]
